FAERS Safety Report 17800914 (Version 1)
Quarter: 2020Q2

REPORT INFORMATION
  Report Type: Spontaneous
  Country: US (occurrence: US)
  Receive Date: 20200518
  Receipt Date: 20200518
  Transmission Date: 20200714
  Serious: No
  Sender: FDA-Public Use
  Company Number: US-TEVA-2020-US-1235864

PATIENT
  Age: 14 Year
  Sex: Female

DRUGS (1)
  1. VIGABATRIN. [Suspect]
     Active Substance: VIGABATRIN
     Indication: EPILEPSY
     Dosage: 3000 MILLIGRAM DAILY;
     Route: 048
     Dates: start: 202002

REACTIONS (6)
  - Hypersomnia [Unknown]
  - Abdominal discomfort [Unknown]
  - Speech disorder [Unknown]
  - Eating disorder [Unknown]
  - Product substitution issue [Unknown]
  - Nausea [Unknown]

NARRATIVE: CASE EVENT DATE: 202003
